FAERS Safety Report 12374395 (Version 1)
Quarter: 2016Q2

REPORT INFORMATION
  Report Type: Spontaneous
  Country: RO (occurrence: RO)
  Receive Date: 20160517
  Receipt Date: 20160517
  Transmission Date: 20160815
  Serious: Yes (Hospitalization, Other)
  Sender: FDA-Public Use
  Company Number: RO-AMGEN-ROUSP2016061929

PATIENT
  Age: 56 Year
  Sex: Male
  Weight: 95 kg

DRUGS (1)
  1. ENBREL [Suspect]
     Active Substance: ETANERCEPT
     Indication: PSORIASIS
     Dosage: 50 MG, WEEKLY
     Route: 058
     Dates: start: 201205, end: 201506

REACTIONS (1)
  - Rectal adenocarcinoma [Recovering/Resolving]

NARRATIVE: CASE EVENT DATE: 20151123
